FAERS Safety Report 20863640 (Version 3)
Quarter: 2022Q3

REPORT INFORMATION
  Report Type: Report from Study
  Country: US (occurrence: US)
  Receive Date: 20220523
  Receipt Date: 20220818
  Transmission Date: 20221027
  Serious: Yes (Hospitalization)
  Sender: FDA-Public Use
  Company Number: US-ABBVIE-22P-163-4407076-00

PATIENT
  Age: 61 Year
  Sex: Male
  Weight: 68.8 kg

DRUGS (5)
  1. IBRUTINIB [Suspect]
     Active Substance: IBRUTINIB
     Indication: Mantle cell lymphoma
     Route: 048
     Dates: start: 20190425, end: 20220420
  2. IBRUTINIB [Suspect]
     Active Substance: IBRUTINIB
     Route: 048
     Dates: start: 20220513
  3. ZILOVERTAMAB [Concomitant]
     Active Substance: ZILOVERTAMAB
     Indication: Mantle cell lymphoma
     Route: 042
     Dates: start: 20190328, end: 20220328
  4. ZILOVERTAMAB [Concomitant]
     Active Substance: ZILOVERTAMAB
     Route: 042
     Dates: start: 20220511
  5. NEOSPORIN [Concomitant]
     Active Substance: BACITRACIN ZINC\NEOMYCIN SULFATE\POLYMYXIN B SULFATE
     Indication: Product used for unknown indication
     Dates: start: 20200130

REACTIONS (1)
  - Cellulitis staphylococcal [Recovered/Resolved]

NARRATIVE: CASE EVENT DATE: 20220421
